FAERS Safety Report 6576960-X (Version None)
Quarter: 2010Q1

REPORT INFORMATION
  Report Type: 
  Country: None (occurrence: None)
  Receive Date: 20100210
  Receipt Date: 20090318
  Transmission Date: 20100710
  Serious: Yes (Death, Hospitalization)
  Sender: FDA-Public Use
  Company Number: FR-JNJFOC-20090304273

PATIENT
  Age: 50 Year
  Sex: Male

DRUGS (6)
  1. OFLOCET [Suspect]
     Indication: URINARY TRACT INFECTION
     Route: 042
  2. DIPRIVAN [Concomitant]
     Route: 065
  3. ERYTHROMYCIN [Concomitant]
     Route: 065
  4. NEXIUM [Concomitant]
     Route: 065
  5. LOVENOX [Concomitant]
     Route: 065
  6. BRISTOPEN [Concomitant]
     Route: 065

REACTIONS (2)
  - ANAPHYLACTIC SHOCK [None]
  - DEATH [None]
